FAERS Safety Report 23710050 (Version 3)
Quarter: 2024Q2

REPORT INFORMATION
  Report Type: Spontaneous
  Country: US (occurrence: None)
  Receive Date: 20240405
  Receipt Date: 20240509
  Transmission Date: 20240716
  Serious: No
  Sender: FDA-Public Use
  Company Number: 2024A062458

PATIENT
  Age: 69 Year
  Sex: Female

DRUGS (1)
  1. FASENRA [Suspect]
     Active Substance: BENRALIZUMAB
     Indication: Asthma
     Dosage: 30ML/KG EVERY EIGHT WEEKS
     Route: 058
     Dates: start: 202102, end: 20240306

REACTIONS (2)
  - Headache [Recovered/Resolved]
  - Blood pressure increased [Unknown]
